FAERS Safety Report 11168211 (Version 1)
Quarter: 2015Q2

REPORT INFORMATION
  Report Type: Spontaneous
  Country: US (occurrence: US)
  Receive Date: 20150605
  Receipt Date: 20150605
  Transmission Date: 20150821
  Serious: No
  Sender: FDA-Public Use
  Company Number: US-TEVA-568175USA

PATIENT
  Sex: Female

DRUGS (2)
  1. RITUXIMAB [Concomitant]
     Active Substance: RITUXIMAB
  2. TREANDA [Suspect]
     Active Substance: BENDAMUSTINE HYDROCHLORIDE
     Route: 065

REACTIONS (2)
  - Arthralgia [Unknown]
  - Pruritus [Unknown]
